FAERS Safety Report 23821551 (Version 1)
Quarter: 2024Q2

REPORT INFORMATION
  Report Type: Spontaneous
  Country: US (occurrence: None)
  Receive Date: 20240504
  Receipt Date: 20240504
  Transmission Date: 20240716
  Serious: No
  Sender: FDA-Public Use
  Company Number: None

PATIENT
  Age: 32 Year
  Sex: Male

DRUGS (1)
  1. APRETUDE [Suspect]
     Active Substance: CABOTEGRAVIR\CABOTEGRAVIR SODIUM
     Indication: Exposure to communicable disease

REACTIONS (3)
  - Injection site erythema [None]
  - Injection site pain [None]
  - Acne [None]

NARRATIVE: CASE EVENT DATE: 20240422
